FAERS Safety Report 22099331 (Version 2)
Quarter: 2023Q1

REPORT INFORMATION
  Report Type: Report from Study
  Country: US (occurrence: US)
  Receive Date: 20230315
  Receipt Date: 20230323
  Transmission Date: 20230418
  Serious: Yes (Life-Threatening, Hospitalization)
  Sender: FDA-Public Use
  Company Number: US-PFIZER INC-PV202300047767

PATIENT
  Age: 62 Year
  Sex: Male
  Weight: 90.703 kg

DRUGS (1)
  1. TORISEL [Suspect]
     Active Substance: TEMSIROLIMUS
     Dosage: 25.0 MG/DOSE
     Route: 042

REACTIONS (1)
  - Cardiac arrest [Not Recovered/Not Resolved]
